FAERS Safety Report 20174140 (Version 3)
Quarter: 2023Q1

REPORT INFORMATION
  Report Type: Report from Study
  Country: US (occurrence: US)
  Receive Date: 20211213
  Receipt Date: 20230223
  Transmission Date: 20230417
  Serious: Yes (Hospitalization, Other)
  Sender: FDA-Public Use
  Company Number: US-TAKEDA-2021TUS078239

PATIENT
  Age: 68 Year
  Sex: Male

DRUGS (60)
  1. TEDUGLUTIDE [Suspect]
     Active Substance: TEDUGLUTIDE
     Indication: Short-bowel syndrome
     Dosage: 5 MILLIGRAM, QD
     Route: 058
     Dates: start: 20210329
  2. TEDUGLUTIDE [Suspect]
     Active Substance: TEDUGLUTIDE
     Indication: Short-bowel syndrome
     Dosage: 5 MILLIGRAM, QD
     Route: 058
     Dates: start: 20210329
  3. TEDUGLUTIDE [Suspect]
     Active Substance: TEDUGLUTIDE
     Indication: Short-bowel syndrome
     Dosage: 5 MILLIGRAM, QD
     Route: 058
     Dates: start: 20210329
  4. TEDUGLUTIDE [Suspect]
     Active Substance: TEDUGLUTIDE
     Indication: Short-bowel syndrome
     Dosage: 5 MILLIGRAM, QD
     Route: 058
     Dates: start: 20210329
  5. CREON [Concomitant]
     Active Substance: PANCRELIPASE AMYLASE\PANCRELIPASE LIPASE\PANCRELIPASE PROTEASE
     Indication: Dyspepsia
     Dosage: 24000 INTERNATIONAL UNIT, TID
     Route: 048
     Dates: start: 20180807
  6. GABAPENTIN [Concomitant]
     Active Substance: GABAPENTIN
     Indication: Pain prophylaxis
     Dosage: 300 MILLIGRAM, SINGLE
     Route: 048
     Dates: start: 20210928, end: 20210928
  7. ERTAPENEM [Concomitant]
     Active Substance: ERTAPENEM
     Indication: Pain prophylaxis
     Dosage: 1 GRAM, SINGLE
     Route: 042
     Dates: start: 20210928, end: 20210928
  8. CEFAZOLIN [Concomitant]
     Active Substance: CEFAZOLIN
     Indication: Prophylaxis
     Dosage: 2 GRAM, SINGLE
     Route: 042
     Dates: start: 20210928, end: 20210928
  9. ACETAMINOPHEN [Concomitant]
     Active Substance: ACETAMINOPHEN
     Indication: Pain prophylaxis
     Dosage: 1000 MILLIGRAM, SINGLE
     Route: 048
     Dates: start: 20210928, end: 20210928
  10. ACETAMINOPHEN [Concomitant]
     Active Substance: ACETAMINOPHEN
     Indication: Procedural pain
     Dosage: 1000 MILLIGRAM
     Route: 042
     Dates: start: 20210928, end: 20210929
  11. CELECOXIB [Concomitant]
     Active Substance: CELECOXIB
     Indication: Pain prophylaxis
     Dosage: 200 MILLIGRAM, SINGLE
     Route: 048
     Dates: start: 20210928, end: 20210928
  12. MIDAZOLAM [Concomitant]
     Active Substance: MIDAZOLAM
     Indication: Sedative therapy
     Dosage: 2 MILLIGRAM, SINGLE
     Route: 042
     Dates: start: 20210928, end: 20210928
  13. ROCURONIUM [Concomitant]
     Active Substance: ROCURONIUM BROMIDE
     Indication: Muscle relaxant therapy
     Dosage: 50 MILLIGRAM, SINGLE
     Route: 042
     Dates: start: 20210928, end: 20210928
  14. HYDROMORPHONE [Concomitant]
     Active Substance: HYDROMORPHONE
     Indication: Procedural pain
     Dosage: 0.5 MILLIGRAM, SINGLE
     Route: 042
     Dates: start: 20210928, end: 20210928
  15. HYDROMORPHONE [Concomitant]
     Active Substance: HYDROMORPHONE
     Indication: Pain
     Dosage: 0.5 MILLIGRAM
     Route: 042
     Dates: start: 20210528, end: 20210529
  16. LIDOCAINE [Concomitant]
     Active Substance: LIDOCAINE
     Indication: Pain prophylaxis
     Dosage: 60 MILLIGRAM, SINGLE
     Route: 042
     Dates: start: 20210928, end: 20210928
  17. OXYCODONE [Concomitant]
     Active Substance: OXYCODONE
     Indication: Procedural pain
     Dosage: 5 MILLIGRAM, SINGLE
     Route: 048
     Dates: start: 20210928, end: 20210928
  18. FENTANYL [Concomitant]
     Active Substance: FENTANYL
     Indication: Pain prophylaxis
     Dosage: UNK
     Route: 042
     Dates: start: 20210928, end: 20210928
  19. EPHEDRINE [Concomitant]
     Active Substance: EPHEDRINE
     Indication: Hypotension
     Dosage: 10 MILLIGRAM, QD
     Route: 042
     Dates: start: 20210928, end: 20210928
  20. EPHEDRINE [Concomitant]
     Active Substance: EPHEDRINE
     Indication: Prophylaxis
  21. PHENYLEPHRINE [Concomitant]
     Active Substance: PHENYLEPHRINE HYDROCHLORIDE
     Indication: Hypotension
     Dosage: UNK, SINGLE
     Route: 042
     Dates: start: 20210928, end: 20210928
  22. PHENYLEPHRINE [Concomitant]
     Active Substance: PHENYLEPHRINE HYDROCHLORIDE
     Indication: Prophylaxis
  23. ONDANSETRON [Concomitant]
     Active Substance: ONDANSETRON
     Indication: Prophylaxis of nausea and vomiting
     Dosage: 4 MILLIGRAM, SINGLE
     Route: 042
     Dates: start: 20210928, end: 20210928
  24. ONDANSETRON [Concomitant]
     Active Substance: ONDANSETRON
     Indication: Nausea
     Dosage: 8 MILLIGRAM, BID
     Route: 060
     Dates: start: 20210603
  25. DEXAMETHASONE [Concomitant]
     Active Substance: DEXAMETHASONE
     Indication: Prophylaxis of nausea and vomiting
     Dosage: 4 MILLIGRAM, SINGLE
     Route: 042
     Dates: start: 20210928, end: 20210928
  26. SUGAMMADEX [Concomitant]
     Active Substance: SUGAMMADEX
     Indication: Surgery
     Dosage: 200 MILLIGRAM, SINGLE
     Route: 042
     Dates: start: 20210928, end: 20210928
  27. LACTATED RINGERS SOLUTION [Concomitant]
     Active Substance: CALCIUM CHLORIDE\POTASSIUM CHLORIDE\SODIUM CHLORIDE\SODIUM LACTATE
     Indication: Prophylaxis
     Dosage: 500 MILLILITER, SINGLE
     Route: 042
     Dates: start: 20210928, end: 20210928
  28. LACTATED RINGERS SOLUTION [Concomitant]
     Active Substance: CALCIUM CHLORIDE\POTASSIUM CHLORIDE\SODIUM CHLORIDE\SODIUM LACTATE
     Dosage: 650 MILLILITER
     Route: 042
     Dates: start: 20210928, end: 20210928
  29. METHOCARBAMOL [Concomitant]
     Active Substance: METHOCARBAMOL
     Indication: Muscle relaxant therapy
     Dosage: 1000 MILLIGRAM, QD
     Route: 042
     Dates: start: 20210928, end: 20210929
  30. MORPHINE [Concomitant]
     Active Substance: MORPHINE
     Indication: Procedural pain
     Dosage: 4 MILLIGRAM
     Route: 042
     Dates: start: 20210928, end: 20210929
  31. MORPHINE [Concomitant]
     Active Substance: MORPHINE
     Indication: Pain
     Dosage: 4 MILLIGRAM, SINGLE
     Route: 042
     Dates: start: 20210528, end: 20210528
  32. MORPHINE [Concomitant]
     Active Substance: MORPHINE
     Dosage: 2 MILLIGRAM, QD
     Route: 042
     Dates: start: 20210528, end: 20210528
  33. METOPROLOL [Concomitant]
     Active Substance: METOPROLOL
     Indication: Hypertension
     Dosage: 25 MILLIGRAM, SINGLE
     Route: 048
     Dates: start: 20210929, end: 20210929
  34. BACLOFEN [Concomitant]
     Active Substance: BACLOFEN
     Indication: Gastrointestinal pain
     Dosage: 10 MILLIGRAM, TID
     Route: 048
     Dates: start: 20191211
  35. DICYCLOMINE [Concomitant]
     Active Substance: DICYCLOMINE HYDROCHLORIDE
     Indication: Abdominal pain
     Dosage: 10 GRAM, TID
     Dates: start: 20210527
  36. DICYCLOMINE [Concomitant]
     Active Substance: DICYCLOMINE HYDROCHLORIDE
     Indication: Muscle spasms
     Dosage: 20 MILLIGRAM, SINGLE
     Route: 048
     Dates: start: 20210528, end: 20210528
  37. FLUTICASONE PROPIONATE [Concomitant]
     Active Substance: FLUTICASONE PROPIONATE
     Indication: Hypersensitivity
     Dosage: 50 MICROGRAM, QD
     Route: 061
     Dates: start: 20180615
  38. LOMOTIL [Concomitant]
     Active Substance: ATROPINE SULFATE\DIPHENOXYLATE HYDROCHLORIDE
     Indication: Diarrhoea
     Dosage: 5 MILLIGRAM, QID
     Route: 048
     Dates: start: 20200817, end: 20211202
  39. OPIUM TINCTURE [Concomitant]
     Active Substance: MORPHINE
     Indication: Short-bowel syndrome
     Dosage: 0.6 MILLILITER
     Route: 048
     Dates: start: 20200529
  40. OXYCODONE AND ACETAMINOPHEN [Concomitant]
     Active Substance: ACETAMINOPHEN\OXYCODONE HYDROCHLORIDE
     Indication: Abdominal pain
     Dosage: 5 MILLIGRAM
     Route: 048
     Dates: start: 20190713, end: 20211013
  41. PREDNISONE [Concomitant]
     Active Substance: PREDNISONE
     Indication: Pyoderma gangrenosum
     Dosage: 10 GRAM
     Route: 048
     Dates: start: 20201019, end: 20210208
  42. AMOXICILLIN\CLAVULANATE POTASSIUM [Concomitant]
     Active Substance: AMOXICILLIN\CLAVULANATE POTASSIUM
     Indication: Abdominal abscess
     Dosage: 875 MILLIGRAM
     Route: 048
     Dates: start: 20180816, end: 20211013
  43. SULFAMETHOXAZOLE AND TRIMETHOPRIM [Concomitant]
     Active Substance: SULFAMETHOXAZOLE\TRIMETHOPRIM
     Indication: Cellulitis
     Dosage: 800 MILLIGRAM
     Route: 048
     Dates: start: 20210108, end: 20211013
  44. CYCLOBENZAPRINE [Concomitant]
     Active Substance: CYCLOBENZAPRINE
     Indication: Muscle spasms
     Dosage: 10 MILLIGRAM, TID
     Route: 048
     Dates: start: 20210807
  45. ASPIRIN [Concomitant]
     Active Substance: ASPIRIN
     Indication: Cardiac disorder
     Dosage: 81 MILLIGRAM, QD
     Route: 048
  46. CETIRIZINE [Concomitant]
     Active Substance: CETIRIZINE HYDROCHLORIDE
     Indication: Hypersensitivity
     Dosage: 10 MILLIGRAM, QD
     Route: 048
     Dates: start: 20210528, end: 20210531
  47. FERROUS SULFATE [Concomitant]
     Active Substance: FERROUS SULFATE
     Indication: Blood iron
     Dosage: 220 MILLIGRAM, QD
     Route: 048
     Dates: start: 20210528, end: 20210531
  48. LACTOBACILLUS RHAMNOSUS [Concomitant]
     Active Substance: LACTOBACILLUS RHAMNOSUS
     Indication: Probiotic therapy
     Dosage: UNK UNK, QD
     Route: 048
     Dates: start: 20210528, end: 20210531
  49. LOPERAMIDE [Concomitant]
     Active Substance: LOPERAMIDE
     Indication: Diarrhoea
     Dosage: 2 MILLIGRAM, QD
     Route: 048
     Dates: start: 20210528, end: 20210531
  50. METOPROLOL TARTRATE [Concomitant]
     Active Substance: METOPROLOL TARTRATE
     Indication: Hypertension
     Dosage: 12.5 MILLIGRAM, QD
     Route: 048
     Dates: start: 20210528, end: 20210530
  51. METOPROLOL TARTRATE [Concomitant]
     Active Substance: METOPROLOL TARTRATE
     Dosage: 2.5 MILLIGRAM, QD
     Route: 048
     Dates: start: 20210528, end: 20210531
  52. METRONIDAZOLE [Concomitant]
     Active Substance: METRONIDAZOLE
     Indication: Clostridium difficile infection
     Dosage: 500 MILLIGRAM, TID
     Route: 042
     Dates: start: 20210528, end: 20210531
  53. PANCRELIPASE [Concomitant]
     Active Substance: PANCRELIPASE
     Indication: Dyspepsia
     Dosage: UNK UNK, TID
     Route: 048
     Dates: start: 20210528, end: 20210531
  54. PANTOPRAZOLE [Concomitant]
     Active Substance: PANTOPRAZOLE
     Indication: Gastrooesophageal reflux disease
     Dosage: 40 MILLIGRAM, QD
     Route: 048
     Dates: start: 20210528, end: 20210531
  55. PYRIDOXINE [Concomitant]
     Active Substance: PYRIDOXINE
     Indication: Hypovitaminosis
     Dosage: 100 MILLIGRAM, QD
     Route: 048
     Dates: start: 20210528, end: 20210531
  56. TAMSULOSIN [Concomitant]
     Active Substance: TAMSULOSIN
     Indication: Supplementation therapy
     Dosage: 0.8 MILLIGRAM, QD
     Route: 048
     Dates: start: 20210528, end: 20210531
  57. VANCOMYCIN [Concomitant]
     Active Substance: VANCOMYCIN
     Indication: Clostridium difficile infection
     Dosage: 125 MILLIGRAM, QID
     Route: 048
     Dates: start: 20210528, end: 20210611
  58. KETOROLAC [Concomitant]
     Active Substance: KETOROLAC TROMETHAMINE
     Indication: Pain
     Dosage: 15 MILLIGRAM
     Route: 042
     Dates: start: 20210529, end: 20210530
  59. MAGNESIUM SULFATE [Concomitant]
     Active Substance: MAGNESIUM SULFATE
     Indication: Electrolyte imbalance
     Dosage: 400 MILLIGRAM
     Route: 048
     Dates: start: 20210528, end: 20210530
  60. SODIUM CHLORIDE [Concomitant]
     Active Substance: SODIUM CHLORIDE
     Indication: Electrolyte imbalance
     Dosage: 1000 MILLILITER
     Route: 042
     Dates: start: 20210528, end: 20210530

REACTIONS (1)
  - Clostridium difficile colitis [Recovered/Resolved]

NARRATIVE: CASE EVENT DATE: 20210527
